FAERS Safety Report 25928070 (Version 2)
Quarter: 2025Q4

REPORT INFORMATION
  Report Type: Spontaneous
  Country: EU (occurrence: EU)
  Receive Date: 20251016
  Receipt Date: 20251030
  Transmission Date: 20260118
  Serious: Yes (Other)
  Sender: TEVA
  Company Number: EU-TEVA-VS-3380301

PATIENT
  Age: 26 Year
  Sex: Female

DRUGS (16)
  1. SPIRONOLACTONE [Suspect]
     Active Substance: SPIRONOLACTONE
     Indication: Blood pressure management
     Route: 065
  2. MOXONIDINE [Concomitant]
     Active Substance: MOXONIDINE
     Indication: Blood pressure increased
     Route: 065
  3. BELATACEPT [Concomitant]
     Active Substance: BELATACEPT
     Indication: Prophylaxis against transplant rejection
     Route: 065
     Dates: start: 202205
  4. DAPAGLIFLOZIN [Concomitant]
     Active Substance: DAPAGLIFLOZIN
     Indication: Chronic kidney disease
     Route: 065
  5. DILTIAZEM [Suspect]
     Active Substance: DILTIAZEM
     Indication: Blood pressure management
     Route: 065
  6. DILTIAZEM [Suspect]
     Active Substance: DILTIAZEM
     Indication: Blood pressure management
     Route: 065
  7. PANTOPRAZOLE [Suspect]
     Active Substance: PANTOPRAZOLE
     Indication: Gastrooesophageal reflux disease
     Dosage: 20-80 MG
     Route: 065
  8. PANTOPRAZOLE [Suspect]
     Active Substance: PANTOPRAZOLE
     Indication: Gastrooesophageal reflux disease
     Dosage: DOSE DOUBLED
     Route: 065
  9. TORSEMIDE [Suspect]
     Active Substance: TORSEMIDE
     Indication: Oedema
     Dosage: RESUMED
     Route: 065
  10. TORSEMIDE [Suspect]
     Active Substance: TORSEMIDE
     Indication: Oedema
     Dosage: INCREASED
     Route: 065
  11. TORSEMIDE [Suspect]
     Active Substance: TORSEMIDE
     Indication: Oedema
     Dosage: 5-20 MG DAILY
     Route: 065
  12. TORSEMIDE [Suspect]
     Active Substance: TORSEMIDE
     Indication: Oedema
     Dosage: INCREASED
     Route: 065
  13. MYCOPHENOLATE MOFETIL [Concomitant]
     Active Substance: MYCOPHENOLATE MOFETIL
     Indication: Prophylaxis against transplant rejection
     Route: 065
  14. BUDESONIDE [Suspect]
     Active Substance: BUDESONIDE
     Indication: IgA nephropathy
     Route: 065
     Dates: start: 202304
  15. RAMIPRIL [Suspect]
     Active Substance: RAMIPRIL
     Indication: Blood pressure management
     Route: 065
  16. PREDNISOLONE [Suspect]
     Active Substance: PREDNISOLONE
     Indication: Prophylaxis against transplant rejection
     Route: 048

REACTIONS (14)
  - Haematoma [Not Recovered/Not Resolved]
  - Alopecia [Not Recovered/Not Resolved]
  - Petechiae [Recovering/Resolving]
  - Menstruation irregular [Unknown]
  - Fatigue [Recovering/Resolving]
  - Alopecia [Not Recovered/Not Resolved]
  - Drug ineffective [Unknown]
  - Arthralgia [Recovering/Resolving]
  - Amenorrhoea [Unknown]
  - Swelling face [Unknown]
  - Oedema peripheral [Recovering/Resolving]
  - Bowel movement irregularity [Recovering/Resolving]
  - Hair growth abnormal [Unknown]
  - Gastrooesophageal reflux disease [Not Recovered/Not Resolved]
